FAERS Safety Report 4898335-1 (Version None)
Quarter: 2006Q1

REPORT INFORMATION
  Report Type: 
  Country: None (occurrence: None)
  Receive Date: 20060127
  Receipt Date: 20060106
  Transmission Date: 20060701
  Serious: Yes (Death, Hospitalization, Other)
  Sender: FDA-Public Use
  Company Number: US_0501110500

PATIENT
  Age: 42 Year
  Sex: Male
  Weight: 95.5 kg

DRUGS (12)
  1. ZYPREXA [Suspect]
     Indication: SCHIZOAFFECTIVE DISORDER
     Dosage: SEE IMAGE, ORAL
     Route: 048
     Dates: start: 19990101
  2. ZYPREXA [Suspect]
     Indication: SCHIZOAFFECTIVE DISORDER
     Dosage: SEE IMAGE, ORAL
     Route: 048
     Dates: start: 20010308
  3. PROZAC [Concomitant]
  4. CELEXA [Concomitant]
  5. ATIVAN [Concomitant]
  6. TRAZODONE HCL [Concomitant]
  7. IBUPROFEN [Concomitant]
  8. PAXIL [Concomitant]
  9. SERZONE [Concomitant]
  10. WELLBUTRIN [Concomitant]
  11. RISPERDAL [Concomitant]
  12. SEROQUEL [Concomitant]

REACTIONS (14)
  - AFFECTIVE DISORDER [None]
  - CARDIO-RESPIRATORY ARREST [None]
  - DEEP VEIN THROMBOSIS [None]
  - DEPRESSION [None]
  - DIABETES MELLITUS [None]
  - DIABETIC KETOACIDOSIS [None]
  - DRUG DEPENDENCE [None]
  - HEADACHE [None]
  - LACERATION [None]
  - OEDEMA [None]
  - SCHIZOAFFECTIVE DISORDER [None]
  - STRESS [None]
  - SUICIDAL IDEATION [None]
  - TOOTHACHE [None]
